FAERS Safety Report 8065470-9 (Version None)
Quarter: 2012Q1

REPORT INFORMATION
  Report Type: 
  Country: None (occurrence: None)
  Receive Date: 20120117
  Receipt Date: 20120103
  Transmission Date: 20120608
  Serious: Yes (Other)
  Sender: FDA-Public Use
  Company Number: DSA_48835_2012

PATIENT
  Sex: Female

DRUGS (1)
  1. ELIDEL [Suspect]
     Indication: NEURODERMATITIS
     Dosage: SEVERAL TIMES A DAY TOPICAL
     Route: 061
     Dates: start: 20000101

REACTIONS (3)
  - BLISTER [None]
  - OCULAR ALBINISM [None]
  - PHOTOPHOBIA [None]
